FAERS Safety Report 6331640-0 (Version None)
Quarter: 2009Q3

REPORT INFORMATION
  Report Type: 
  Country: None (occurrence: None)
  Receive Date: 20090827
  Receipt Date: 20090820
  Transmission Date: 20100115
  Serious: Yes (Other)
  Sender: FDA-Public Use
  Company Number: PHHY2009AR35284

PATIENT
  Sex: Female

DRUGS (1)
  1. ACLASTA [Suspect]
     Indication: OSTEOPOROSIS
     Dosage: 1 INFUSION ANNUALLY
     Dates: start: 20090819

REACTIONS (17)
  - ABDOMINAL DISCOMFORT [None]
  - ARTHRALGIA [None]
  - BLOOD PRESSURE INCREASED [None]
  - DISCOMFORT [None]
  - DRY MOUTH [None]
  - EYE DISORDER [None]
  - GROIN PAIN [None]
  - HEADACHE [None]
  - HEART RATE INCREASED [None]
  - LARYNGEAL OEDEMA [None]
  - MUSCLE SPASMS [None]
  - MUSCULAR WEAKNESS [None]
  - MYALGIA [None]
  - PALPITATIONS [None]
  - PYREXIA [None]
  - SPEECH DISORDER [None]
  - THIRST [None]
